FAERS Safety Report 4556780-8 (Version None)
Quarter: 2005Q1

REPORT INFORMATION
  Report Type: 
  Country: None (occurrence: None)
  Receive Date: 20050103
  Receipt Date: 20041008
  Transmission Date: 20050727
  Serious: Yes (Other)
  Sender: FDA-Public Use
  Company Number: 2004UW15108

PATIENT
  Age: 68 Year
  Sex: Male
  Weight: 113.39 kg

DRUGS (5)
  1. CRESTOR [Suspect]
     Indication: BLOOD CHOLESTEROL INCREASED
     Dosage: 10 MG PO
     Route: 048
  2. ACEON [Concomitant]
  3. ASPIRIN [Concomitant]
  4. XANAX [Concomitant]
  5. FISH OIL [Concomitant]

REACTIONS (7)
  - ARTHRALGIA [None]
  - FATIGUE [None]
  - ILL-DEFINED DISORDER [None]
  - MYALGIA [None]
  - NAUSEA [None]
  - SLEEP APNOEA SYNDROME [None]
  - TREMOR [None]
